FAERS Safety Report 6176378-8 (Version None)
Quarter: 2009Q2

REPORT INFORMATION
  Report Type: 
  Country: None (occurrence: None)
  Receive Date: 20090501
  Receipt Date: 20090427
  Transmission Date: 20091009
  Serious: Yes (Hospitalization, Other)
  Sender: FDA-Public Use
  Company Number: CA-TEVA-192981USA

PATIENT
  Age: 16 Year
  Sex: Male

DRUGS (5)
  1. DAUNORUBICIN HYDROCHLORIDE 20MG BASE/10ML, 50MG BASE/20ML [Suspect]
     Indication: ACUTE PROMYELOCYTIC LEUKAEMIA
  2. CYTARABINE [Suspect]
     Indication: ACUTE PROMYELOCYTIC LEUKAEMIA
  3. TRETINOIN [Suspect]
     Indication: ACUTE PROMYELOCYTIC LEUKAEMIA
  4. MERCAPTOPURINE [Suspect]
     Indication: ACUTE PROMYELOCYTIC LEUKAEMIA
  5. METHOTREXATE [Suspect]
     Indication: ACUTE PROMYELOCYTIC LEUKAEMIA
     Route: 048

REACTIONS (1)
  - OESOPHAGEAL STENOSIS [None]
